FAERS Safety Report 24262434 (Version 1)
Quarter: 2024Q3

REPORT INFORMATION
  Report Type: Spontaneous
  Country: US (occurrence: US)
  Receive Date: 20240829
  Receipt Date: 20240829
  Transmission Date: 20241016
  Serious: No
  Sender: ABBVIE
  Company Number: US-ABBVIE-5890563

PATIENT
  Sex: Male

DRUGS (1)
  1. TRICOR [Suspect]
     Active Substance: FENOFIBRATE
     Indication: High density lipoprotein increased
     Route: 048

REACTIONS (3)
  - Off label use [Unknown]
  - Oesophageal pain [Unknown]
  - Oesophageal stenosis [Unknown]
